FAERS Safety Report 6752615-3 (Version None)
Quarter: 2010Q2

REPORT INFORMATION
  Report Type: 
  Country: None (occurrence: None)
  Receive Date: 20100601
  Receipt Date: 20100601
  Transmission Date: 20101027
  Serious: Yes (Life-Threatening, Hospitalization, Disabling, Other)
  Sender: FDA-Public Use
  Company Number: None

PATIENT
  Age: 57 Year
  Sex: Female
  Weight: 50.3493 kg

DRUGS (3)
  1. TAMIFLU [Suspect]
     Indication: INFLUENZA
     Dosage: 75 MG TWICE DAILY PO
     Route: 048
     Dates: start: 20100516, end: 20100518
  2. IBUPROFEN [Suspect]
     Indication: EAR PAIN
     Dosage: 200-400 MG EVERY 4-6 HOURS PO
     Route: 048
     Dates: start: 20100515, end: 20100518
  3. IBUPROFEN [Suspect]
     Indication: PYREXIA
     Dosage: 200-400 MG EVERY 4-6 HOURS PO
     Route: 048
     Dates: start: 20100515, end: 20100518

REACTIONS (9)
  - COAGULOPATHY [None]
  - HEPATIC FAILURE [None]
  - HYPOTENSION [None]
  - PANCREATITIS ACUTE [None]
  - RENAL FAILURE ACUTE [None]
  - STEVENS-JOHNSON SYNDROME [None]
  - TACHYCARDIA [None]
  - TACHYPNOEA [None]
  - TOXIC EPIDERMAL NECROLYSIS [None]
